APPROVED DRUG PRODUCT: AGGRASTAT
Active Ingredient: TIROFIBAN HYDROCHLORIDE
Strength: EQ 5MG BASE/100ML (EQ 0.05MG BASE/ML)
Dosage Form/Route: SOLUTION;INTRAVENOUS
Application: N020913 | Product #002 | TE Code: AP
Applicant: MEDICURE INTERNATIONAL INC
Approved: May 17, 2002 | RLD: Yes | RS: No | Type: RX